FAERS Safety Report 12430382 (Version 2)
Quarter: 2016Q2

REPORT INFORMATION
  Report Type: Report from Study
  Country: US (occurrence: US)
  Receive Date: 20160602
  Receipt Date: 20160629
  Transmission Date: 20160815
  Serious: Yes (Hospitalization)
  Sender: FDA-Public Use
  Company Number: US-ACTELION-A-NJ2016-137033

PATIENT
  Age: 60 Year
  Sex: Female

DRUGS (3)
  1. SILDENAFIL. [Concomitant]
     Active Substance: SILDENAFIL
  2. VELETRI [Suspect]
     Active Substance: EPOPROSTENOL
     Indication: PULMONARY HYPERTENSION
     Dosage: 15 NG/KG, PER MIN
     Route: 042
     Dates: start: 20160118
  3. WARFARIN [Concomitant]
     Active Substance: WARFARIN

REACTIONS (5)
  - Catheter site discolouration [Unknown]
  - Catheter site pruritus [Unknown]
  - Localised infection [Unknown]
  - Finger amputation [Unknown]
  - Catheter site dryness [Unknown]
